FAERS Safety Report 12828511 (Version 1)
Quarter: 2016Q4

REPORT INFORMATION
  Report Type: Spontaneous
  Country: US (occurrence: US)
  Receive Date: 20161007
  Receipt Date: 20161007
  Transmission Date: 20170207
  Serious: No
  Sender: FDA-Public Use
  Company Number: US-SA-2015SA144539

PATIENT
  Age: 54 Year
  Sex: Female
  Weight: 115.21 kg

DRUGS (11)
  1. NUEDEXTA [Concomitant]
     Active Substance: DEXTROMETHORPHAN HYDROBROMIDE\QUINIDINE SULFATE
     Dosage: 20-10 MG BID
  2. LISINOPRIL. [Concomitant]
     Active Substance: LISINOPRIL
  3. AUBAGIO [Suspect]
     Active Substance: TERIFLUNOMIDE
     Indication: MULTIPLE SCLEROSIS
     Route: 048
     Dates: start: 20150813, end: 20150901
  4. BUPROPION. [Concomitant]
     Active Substance: BUPROPION
  5. TYLENOL [Concomitant]
     Active Substance: ACETAMINOPHEN
     Dosage: #0300/30 PRN
  6. AUBAGIO [Suspect]
     Active Substance: TERIFLUNOMIDE
     Indication: MULTIPLE SCLEROSIS
     Route: 048
     Dates: start: 20150905, end: 20150908
  7. NABUMETONE. [Concomitant]
     Active Substance: NABUMETONE
  8. DESIPRAMINE [Concomitant]
     Active Substance: DESIPRAMINE
  9. NEURONTIN [Concomitant]
     Active Substance: GABAPENTIN
  10. PRAVASTATIN. [Concomitant]
     Active Substance: PRAVASTATIN
  11. LEVOTHYROXINE. [Concomitant]
     Active Substance: LEVOTHYROXINE

REACTIONS (2)
  - Headache [Recovering/Resolving]
  - Pain in extremity [Recovering/Resolving]

NARRATIVE: CASE EVENT DATE: 201509
